FAERS Safety Report 4800486-4 (Version None)
Quarter: 2005Q4

REPORT INFORMATION
  Report Type: 
  Country: None (occurrence: None)
  Receive Date: 20051013
  Receipt Date: 20050915
  Transmission Date: 20060501
  Serious: Yes (Other)
  Sender: FDA-Public Use
  Company Number: 2005BI017065

PATIENT
  Age: 57 Year
  Sex: Female
  Weight: 54 kg

DRUGS (6)
  1. AVONEX [Suspect]
     Indication: MULTIPLE SCLEROSIS
     Dosage: 30 UG; QW; IM
     Route: 030
     Dates: start: 20030617
  2. GABAPENTIN [Concomitant]
  3. AMITRYPTILLINE [Concomitant]
  4. HYDROCODEINE [Concomitant]
  5. BISACODYL [Concomitant]
  6. REGURIN [Concomitant]

REACTIONS (1)
  - BREAST CANCER FEMALE [None]
